FAERS Safety Report 5855047-5 (Version None)
Quarter: 2008Q3

REPORT INFORMATION
  Report Type: 
  Country: None (occurrence: None)
  Receive Date: 20080822
  Receipt Date: 20080616
  Transmission Date: 20090109
  Serious: No
  Sender: FDA-Public Use
  Company Number: US-ABBOTT-08P-163-0457747-00

PATIENT
  Sex: Female
  Weight: 83.082 kg

DRUGS (2)
  1. SYNTHROID [Suspect]
     Indication: HYPOTHYROIDISM
     Route: 048
     Dates: start: 20070901
  2. LAMOTRIGINE [Concomitant]
     Indication: CONVULSION
     Dosage: NOT REPORTED

REACTIONS (1)
  - WEIGHT INCREASED [None]
